FAERS Safety Report 7364525-1 (Version None)
Quarter: 2011Q1

REPORT INFORMATION
  Report Type: 
  Country: None (occurrence: None)
  Receive Date: 20110321
  Receipt Date: 20110309
  Transmission Date: 20110831
  Serious: Yes (Hospitalization)
  Sender: FDA-Public Use
  Company Number: JP-MERCK-1102USA00102

PATIENT
  Age: 64 Year
  Sex: Male
  Weight: 99 kg

DRUGS (8)
  1. UBIRON [Concomitant]
     Indication: HEPATIC NEOPLASM MALIGNANT
     Route: 065
     Dates: start: 20090907, end: 20110216
  2. NOVOLIN 70/30 [Concomitant]
     Indication: GLYCOSURIA
     Route: 065
     Dates: start: 20090907, end: 20110216
  3. LIVACT [Suspect]
     Indication: HEPATIC CIRRHOSIS
     Route: 048
     Dates: start: 20090907, end: 20110216
  4. NOVORAPID [Concomitant]
     Indication: GLYCOSURIA
     Route: 065
     Dates: start: 20090907, end: 20110216
  5. ASPARA K [Concomitant]
     Indication: BLOOD POTASSIUM DECREASED
     Route: 065
     Dates: start: 20090907, end: 20110216
  6. PEPCID RPD [Suspect]
     Indication: GASTRITIS
     Route: 048
     Dates: start: 20090907, end: 20110129
  7. DIOVAN [Concomitant]
     Indication: HYPERTENSION
     Route: 065
     Dates: start: 20090907, end: 20110216
  8. LASIX [Concomitant]
     Indication: HEPATIC CIRRHOSIS
     Route: 065
     Dates: start: 20090907, end: 20110216

REACTIONS (1)
  - APLASTIC ANAEMIA [None]
